FAERS Safety Report 6789258-1 (Version None)
Quarter: 2010Q2

REPORT INFORMATION
  Report Type: 
  Country: None (occurrence: None)
  Receive Date: 20100623
  Receipt Date: 20090521
  Transmission Date: 20101027
  Serious: Yes (Disabling, Other)
  Sender: FDA-Public Use
  Company Number: US-PFIZER INC-2008052275

PATIENT
  Sex: Female

DRUGS (7)
  1. PROVERA [Suspect]
     Indication: HORMONE REPLACEMENT THERAPY
     Dosage: 10 MG, UNK
     Route: 048
     Dates: start: 19850101, end: 19950101
  2. PREMARIN [Suspect]
     Indication: HORMONE REPLACEMENT THERAPY
     Dosage: 0.625 MG, UNK
     Dates: start: 19850101, end: 19950101
  3. PREMPRO [Suspect]
     Indication: HORMONE REPLACEMENT THERAPY
     Dosage: 0.625MG/2.5MG
     Dates: start: 19950101, end: 19990101
  4. PREMPRO [Suspect]
     Dosage: 0.625MG/2.5MG
     Dates: start: 19990501, end: 20000501
  5. PONDIMIN [Concomitant]
     Indication: WEIGHT CONTROL
     Dosage: UNK
     Dates: start: 19970620
  6. IONAMIN [Concomitant]
     Indication: WEIGHT CONTROL
     Dosage: UNK
     Dates: start: 19970620
  7. PRILOSEC [Concomitant]
     Indication: GASTROOESOPHAGEAL REFLUX DISEASE
     Dosage: UNK
     Dates: start: 19990917

REACTIONS (1)
  - BREAST CANCER FEMALE [None]
